FAERS Safety Report 5273357-X (Version None)
Quarter: 2007Q1

REPORT INFORMATION
  Report Type: 
  Country: None (occurrence: None)
  Receive Date: 20070320
  Receipt Date: 20070308
  Transmission Date: 20070707
  Serious: Yes (Hospitalization)
  Sender: FDA-Public Use
  Company Number: 2007RR-06259

PATIENT
  Age: 83 Year
  Sex: Male

DRUGS (3)
  1. IBUPROFEN [Suspect]
     Indication: PAIN
     Dosage: 200 MG, BID, ORAL
     Route: 048
     Dates: start: 20030517, end: 20030519
  2. MOXYDAR [Concomitant]
  3. ROCEPHIN [Concomitant]

REACTIONS (3)
  - AGRANULOCYTOSIS [None]
  - ANAEMIA [None]
  - THROMBOCYTOPENIA [None]
